FAERS Safety Report 5062595-7 (Version None)
Quarter: 2006Q3

REPORT INFORMATION
  Report Type: 
  Country: None (occurrence: None)
  Receive Date: 20060726
  Receipt Date: 20060720
  Transmission Date: 20061208
  Serious: Yes (Other)
  Sender: FDA-Public Use
  Company Number: 200613883EU

PATIENT
  Age: 52 Year
  Sex: Male

DRUGS (2)
  1. NICORETTE [Suspect]
     Indication: SMOKING CESSATION THERAPY
     Dosage: 2MG FIFTEEN TIMES PER DAY
     Route: 002
     Dates: start: 20000101
  2. UNSPECIFIED MEDICATION [Concomitant]
     Indication: SMOKING CESSATION THERAPY

REACTIONS (2)
  - DEPENDENCE [None]
  - INTENTIONAL DRUG MISUSE [None]
